FAERS Safety Report 7725624-5 (Version None)
Quarter: 2011Q3

REPORT INFORMATION
  Report Type: 
  Country: None (occurrence: None)
  Receive Date: 20110831
  Receipt Date: 20110815
  Transmission Date: 20111222
  Serious: Yes (Death)
  Sender: FDA-Public Use
  Company Number: UTC-009490

PATIENT
  Age: 65 Year
  Sex: Female
  Weight: 51.8 kg

DRUGS (2)
  1. TYVASO [Suspect]
     Indication: COR PULMONALE
     Dosage: 18-54 MICROGRAMS (4 IN 1 D) , INHALATION
     Route: 055
     Dates: start: 20110809
  2. OXYGEN (OXYGEN) [Concomitant]

REACTIONS (1)
  - DEATH [None]
